FAERS Safety Report 18989319 (Version 1)
Quarter: 2021Q1

REPORT INFORMATION
  Report Type: Spontaneous
  Country: CA (occurrence: CA)
  Receive Date: 20210310
  Receipt Date: 20210310
  Transmission Date: 20210420
  Serious: Yes (Hospitalization)
  Sender: FDA-Public Use
  Company Number: CA-SUN PHARMACEUTICAL INDUSTRIES LTD-2021R1-284803

PATIENT
  Age: 13 Year
  Sex: Male

DRUGS (2)
  1. ISOTRETINOIN. [Suspect]
     Active Substance: ISOTRETINOIN
     Indication: ACNE CONGLOBATA
     Dosage: 0.5 MILLIGRAM/KILOGRAM, 1 EVERY 1 DAYS
     Route: 048
  2. DOXYCYCLINE. [Suspect]
     Active Substance: DOXYCYCLINE
     Indication: ACNE CONGLOBATA
     Dosage: 100 MILLIGRAM, 1 EVERY 5 DAYS
     Route: 048

REACTIONS (1)
  - Neutrophilic dermatosis [Unknown]
